FAERS Safety Report 4352470-5 (Version None)
Quarter: 2004Q2

REPORT INFORMATION
  Report Type: 
  Country: None (occurrence: None)
  Receive Date: 20040428
  Receipt Date: 20040419
  Transmission Date: 20050107
  Serious: Yes (Disabling)
  Sender: FDA-Public Use
  Company Number: 200310616BFR

PATIENT
  Age: 56 Year
  Sex: Female

DRUGS (17)
  1. CIPROFLOXACIN [Suspect]
     Dosage: 1 G, TOTAL DAILY, ORAL
     Route: 048
     Dates: start: 20030613, end: 20030701
  2. AUGMENTIN [Concomitant]
  3. ALDACTONE [Concomitant]
  4. LIPANTHYL [Concomitant]
  5. BURINEX [Concomitant]
  6. UNSPECIFIED CORTICOIDS [Concomitant]
  7. UTROGESTAN [Concomitant]
  8. ULTRA-LEVURE [Concomitant]
  9. DAFALGAN [Concomitant]
  10. KALEROID [Concomitant]
  11. TRANSIPEG [Concomitant]
  12. CORTANCYL [Concomitant]
  13. FIXICAL VITAMINE [Concomitant]
  14. FOSAMAX [Concomitant]
  15. MOPRAL [Concomitant]
  16. SULFARLEM [Concomitant]
  17. FLUCONAZOLE [Concomitant]

REACTIONS (1)
  - TOOTH DISORDER [None]
